FAERS Safety Report 5130595-4 (Version None)
Quarter: 2006Q4

REPORT INFORMATION
  Report Type: 
  Country: None (occurrence: None)
  Receive Date: 20061017
  Receipt Date: 20061017
  Transmission Date: 20070319
  Serious: Yes (Life-Threatening, Hospitalization, Other)
  Sender: FDA-Public Use
  Company Number: None

PATIENT
  Age: 52 Year
  Sex: Female

DRUGS (1)
  1. PHOSPHOSODA GINGER LEMON [Suspect]
     Indication: COLONOSCOPY
     Dosage: PO
     Route: 048
     Dates: start: 20060620, end: 20060620

REACTIONS (5)
  - BLOOD PHOSPHORUS ABNORMAL [None]
  - FORMICATION [None]
  - METABOLIC ACIDOSIS [None]
  - PARAESTHESIA [None]
  - RENAL FAILURE [None]
